FAERS Safety Report 5567911-5 (Version None)
Quarter: 2007Q4

REPORT INFORMATION
  Report Type: 
  Country: None (occurrence: None)
  Receive Date: 20071220
  Receipt Date: 20071214
  Transmission Date: 20080405
  Serious: Yes (Other)
  Sender: FDA-Public Use
  Company Number: US-JNJFOC-20071204464

PATIENT
  Sex: Male

DRUGS (1)
  1. DOXIL [Suspect]
     Indication: BREAST CANCER
     Route: 050

REACTIONS (2)
  - EJECTION FRACTION DECREASED [None]
  - OFF LABEL USE [None]
